FAERS Safety Report 7502764-7 (Version None)
Quarter: 2011Q2

REPORT INFORMATION
  Report Type: 
  Country: None (occurrence: None)
  Receive Date: 20110525
  Receipt Date: 20110519
  Transmission Date: 20111010
  Serious: Yes (Life-Threatening, Hospitalization)
  Sender: FDA-Public Use
  Company Number: JP-PFIZER INC-2011086810

PATIENT
  Age: 77 Year
  Sex: Male
  Weight: 65 kg

DRUGS (7)
  1. LIPIODOL ULTRA-FLUID [Concomitant]
     Indication: HEPATIC NEOPLASM MALIGNANT
     Dosage: UNK
     Dates: start: 20110404
  2. CRESTOR [Concomitant]
     Dosage: 5 MG, 1X/DAY
     Route: 048
  3. TAMSULOSIN HCL [Concomitant]
     Dosage: 0.1 MG, 1X/DAY
     Route: 048
  4. LANSOPRAZOLE [Concomitant]
     Dosage: 15 MG, 1X/DAY
     Route: 048
  5. URSO 250 [Concomitant]
     Dosage: 300 MG, 3X/DAY
     Route: 048
  6. EPIRUBICIN HYDROCHLORIDE [Suspect]
     Indication: HEPATIC NEOPLASM MALIGNANT
     Dosage: 50 MG, 1X/DAY
     Dates: start: 20110404, end: 20110404
  7. NORVASC [Concomitant]
     Dosage: 5 MG, 1X/DAY
     Route: 048
     Dates: end: 20110404

REACTIONS (1)
  - ACUTE PULMONARY OEDEMA [None]
